FAERS Safety Report 7306709 (Version 2)
Quarter: 2014Q2

REPORT INFORMATION
  Report Type: Spontaneous
  Country: None (occurrence: None)
  Receive Date: 20091105
  Receipt Date: 20140416
  Transmission Date: 20141212
  Serious: Yes (Hospitalization, Other)
  Sender: FDA-Public Use
  Company Number: AUR-APL-2009-01065

PATIENT
  Age: 43 Year
  Sex: Female
  Weight: 163.5 kg

DRUGS (23)
  1. LISINOPRIL [Suspect]
     Indication: PRODUCT USED FOR UNKNOWN INDICATION
     Route: 048
     Dates: end: 20081013
  2. ACOMPLIA [Suspect]
     Indication: OBESITY
     Dosage: 20MG - ORAL
     Route: 048
     Dates: start: 20070629, end: 20081013
  3. IRBESARTAN [Suspect]
     Indication: PRODUCT USED FOR UNKNOWN INDICATION
     Route: 048
  4. SPIRONOLACTONE [Suspect]
     Indication: PRODUCT USED FOR UNKNOWN INDICATION
     Route: 048
     Dates: end: 20081013
  5. ASPIRIN [Concomitant]
  6. ATENOLOL [Concomitant]
  7. ATORVASTATIN [Concomitant]
  8. BISOPROLOL [Concomitant]
  9. CODEINE [Concomitant]
  10. DILTIAZEM [Concomitant]
  11. FRUSEMIDE (FRUSEMIDE) [Concomitant]
  12. GLYCERYL TRINITRATE [Concomitant]
  13. ISOSORBIDE MONONITRATE [Concomitant]
  14. ISPAGHULA [Concomitant]
  15. LIDOCAINE [Concomitant]
  16. NITRAZEPAM [Concomitant]
  17. OMACOR [Concomitant]
  18. LOVAZA [Concomitant]
  19. PARACETAMOL [Concomitant]
  20. QUININE SULFATE [Concomitant]
  21. TRIMETHOPRIM [Concomitant]
  22. VESICARE [Concomitant]
  23. OMEPRAZOLE (OMEPRAZOLE) (OMEPRAZOLE) [Concomitant]

REACTIONS (13)
  - Fear of eating [None]
  - Weight increased [None]
  - Rectal haemorrhage [None]
  - Gastrooesophageal reflux disease [None]
  - Back pain [None]
  - Hypertension [None]
  - Dehydration [None]
  - Atrial fibrillation [None]
  - Renal failure acute [None]
  - Oliguria [None]
  - Oedema [None]
  - Back pain [None]
  - Pyrexia [None]
